FAERS Safety Report 6464546-7 (Version None)
Quarter: 2009Q4

REPORT INFORMATION
  Report Type: 
  Country: None (occurrence: None)
  Receive Date: 20091201
  Receipt Date: 20091118
  Transmission Date: 20100525
  Serious: Yes (Hospitalization)
  Sender: FDA-Public Use
  Company Number: US-PFIZER INC-2009299041

PATIENT
  Sex: Male
  Weight: 109 kg

DRUGS (15)
  1. PREDNISONE [Suspect]
     Indication: PROSTATE CANCER
     Dosage: 10 MG, 2X/DAY
     Route: 048
     Dates: start: 20091103
  2. BLINDED *NO SUBJECT DRUG [Suspect]
     Indication: PROSTATE CANCER
     Dosage: 37.5 MG, 1X/DAY
     Route: 048
     Dates: start: 20091103
  3. BLINDED *PLACEBO [Suspect]
     Indication: PROSTATE CANCER
     Dosage: 37.5 MG, 1X/DAY
     Route: 048
     Dates: start: 20091103
  4. BLINDED SUNITINIB MALATE [Suspect]
     Indication: PROSTATE CANCER
     Dosage: 37.5 MG, 1X/DAY
     Route: 048
     Dates: start: 20091103
  5. ATENOLOL [Suspect]
     Indication: HYPERTENSION
     Dosage: 50 MG, 1X/DAY
     Route: 048
     Dates: start: 20090224, end: 20091117
  6. ASPIRIN [Concomitant]
     Indication: PROPHYLAXIS
     Dosage: 325 MG, 1X/DAY
     Route: 048
     Dates: start: 20090224
  7. AVODART [Concomitant]
     Indication: PROSTATOMEGALY
     Dosage: 0.5 MG, 1X/DAY
     Route: 048
     Dates: start: 19970101
  8. CALCIUM CITRATE [Concomitant]
     Indication: SUPPLEMENTATION THERAPY
     Dosage: 1000 MG, 1X/DAY
     Route: 048
     Dates: start: 20080501
  9. DIOVAN HCT [Concomitant]
     Indication: HYPERTENSION
     Dosage: 80/12.5 MG, 1X/DAY
     Route: 048
     Dates: start: 20000101
  10. FLORINEF [Concomitant]
     Indication: ORTHOSTATIC HYPOTENSION
     Dosage: 0.1 MG, 1X/DAY
     Route: 048
     Dates: start: 20091113
  11. FLOVENT [Concomitant]
     Indication: COUGH
     Dosage: 125 MG, 1X/DAY
     Route: 055
     Dates: start: 20091101
  12. LIPITOR [Concomitant]
     Indication: LIPIDS INCREASED
     Dosage: 40 MG, 1X/DAY
     Route: 048
     Dates: start: 19970101
  13. ASCORBIC ACID [Concomitant]
     Indication: SUPPLEMENTATION THERAPY
     Dosage: 1000 MG, 1X/DAY
     Route: 048
     Dates: start: 20080501
  14. LUPRON [Concomitant]
     Indication: PROSTATE CANCER
     Dosage: 7.5 MG,  QM0 (EVERY MONTH)
     Route: 030
     Dates: start: 20091026
  15. ZOMETA [Concomitant]
     Indication: METASTASES TO BONE
     Dosage: 4 MG, Q28D
     Route: 042
     Dates: start: 20091029

REACTIONS (1)
  - HYPOTENSION [None]
